FAERS Safety Report 24849100 (Version 2)
Quarter: 2025Q1

REPORT INFORMATION
  Report Type: Spontaneous
  Country: ES (occurrence: ES)
  Receive Date: 20250116
  Receipt Date: 20250318
  Transmission Date: 20250409
  Serious: Yes (Other)
  Sender: SANOFI AVENTIS
  Company Number: ES-SANOFI-02368662

PATIENT
  Sex: Female

DRUGS (2)
  1. ARAVA [Suspect]
     Active Substance: LEFLUNOMIDE
  2. ADALIMUMAB [Suspect]
     Active Substance: ADALIMUMAB

REACTIONS (1)
  - Toxic neuropathy [Unknown]
